FAERS Safety Report 7540843-9 (Version None)
Quarter: 2011Q2

REPORT INFORMATION
  Report Type: 
  Country: None (occurrence: None)
  Receive Date: 20110610
  Receipt Date: 20110606
  Transmission Date: 20111010
  Serious: Yes (Life-Threatening, Hospitalization, Other)
  Sender: FDA-Public Use
  Company Number: US-ACTELION-A-NJ2009-24748

PATIENT

DRUGS (6)
  1. SILDENAFIL CITRATE [Suspect]
  2. TRACLEER [Suspect]
     Indication: PULMONARY ARTERIAL HYPERTENSION
     Dosage: 125 MG, BID
     Route: 048
  3. LASIX [Concomitant]
  4. PREDNISONE [Concomitant]
  5. TRACLEER [Suspect]
     Dosage: 62.5 MG, UNK
     Route: 048
     Dates: start: 20090318
  6. ALBUTEROL SULFATE AUTOHALER [Concomitant]

REACTIONS (17)
  - EMPHYSEMA [None]
  - DYSSTASIA [None]
  - SOMNOLENCE [None]
  - HYPOACUSIS [None]
  - TOOTH INFECTION [None]
  - EYE INFECTION [None]
  - DYSPNOEA [None]
  - SINUS CONGESTION [None]
  - OEDEMA PERIPHERAL [None]
  - DEAFNESS [None]
  - BRONCHITIS [None]
  - CHRONIC OBSTRUCTIVE PULMONARY DISEASE [None]
  - ACUTE RESPIRATORY FAILURE [None]
  - PAIN [None]
  - PELVIC PAIN [None]
  - BLOOD POTASSIUM INCREASED [None]
  - ARTHRALGIA [None]
